FAERS Safety Report 14274264 (Version 2)
Quarter: 2018Q4

REPORT INFORMATION
  Report Type: Spontaneous
  Country: US (occurrence: US)
  Receive Date: 20171211
  Receipt Date: 20181001
  Transmission Date: 20190204
  Serious: Yes (Other)
  Sender: FDA-Public Use
  Company Number: US-OTSUKA-2016_006313

PATIENT
  Sex: Female

DRUGS (6)
  1. ABILIFY [Suspect]
     Active Substance: ARIPIPRAZOLE
     Indication: BORDERLINE PERSONALITY DISORDER
     Dosage: 10 MG, UNK
     Route: 065
     Dates: end: 20151104
  2. REXULTI [Suspect]
     Active Substance: BREXPIPRAZOLE
     Dosage: 2 MG, UNK
     Route: 065
     Dates: start: 2016
  3. ABILIFY [Suspect]
     Active Substance: ARIPIPRAZOLE
     Indication: BIPOLAR DISORDER
     Dosage: 1 DF, UNK
     Route: 065
  4. REXULTI [Suspect]
     Active Substance: BREXPIPRAZOLE
     Dosage: 1 MG, UNK
     Route: 065
     Dates: start: 2016
  5. ABILIFY [Suspect]
     Active Substance: ARIPIPRAZOLE
     Dosage: UNK
  6. REXULTI [Suspect]
     Active Substance: BREXPIPRAZOLE
     Indication: PRODUCT USED FOR UNKNOWN INDICATION
     Dosage: 0.5 MG, UNK
     Route: 065
     Dates: start: 2016

REACTIONS (4)
  - Nervousness [Unknown]
  - Disability [Unknown]
  - Prescribed overdose [Unknown]
  - Diabetes mellitus [Unknown]

NARRATIVE: CASE EVENT DATE: 2016
